FAERS Safety Report 18869010 (Version 1)
Quarter: 2021Q1

REPORT INFORMATION
  Report Type: Report from Study
  Country: CR (occurrence: CR)
  Receive Date: 20210209
  Receipt Date: 20210209
  Transmission Date: 20210420
  Serious: Yes (Hospitalization, Other)
  Sender: FDA-Public Use
  Company Number: PHHY2019CR009805

PATIENT
  Age: 62 Year
  Sex: Female

DRUGS (2)
  1. SCAPHO [Suspect]
     Active Substance: SECUKINUMAB
     Indication: PSORIATIC ARTHROPATHY
     Dosage: 150 MG, QMO
     Route: 058
     Dates: start: 20181212
  2. SCAPHO [Suspect]
     Active Substance: SECUKINUMAB
     Indication: SCOLIOSIS

REACTIONS (20)
  - Arthralgia [Not Recovered/Not Resolved]
  - Lipoma [Recovering/Resolving]
  - Neuropathy peripheral [Recovering/Resolving]
  - Musculoskeletal stiffness [Not Recovered/Not Resolved]
  - Blood pressure increased [Unknown]
  - Skin haemorrhage [Unknown]
  - Product use in unapproved indication [Unknown]
  - Therapeutic product effect incomplete [Unknown]
  - Weight increased [Unknown]
  - Inflammation [Unknown]
  - Finger deformity [Unknown]
  - Blister [Unknown]
  - Incorrect dose administered [Unknown]
  - Psoriasis [Recovering/Resolving]
  - Stress [Recovering/Resolving]
  - Purulent discharge [Unknown]
  - Spinal pain [Not Recovered/Not Resolved]
  - Headache [Unknown]
  - Stomatitis [Unknown]
  - Abdominal discomfort [Unknown]
